FAERS Safety Report 8293490-8 (Version None)
Quarter: 2012Q2

REPORT INFORMATION
  Report Type: 
  Country: None (occurrence: None)
  Receive Date: 20120417
  Receipt Date: 20120406
  Transmission Date: 20120825
  Serious: Yes (Hospitalization)
  Sender: FDA-Public Use
  Company Number: IT-ELI_LILLY_AND_COMPANY-IT201204001890

PATIENT
  Sex: Male

DRUGS (5)
  1. ALIMTA [Suspect]
     Indication: LUNG ADENOCARCINOMA
     Dosage: 500 MG/M2, UNK
     Route: 042
     Dates: start: 20111201
  2. DEXAMETHASONE [Concomitant]
     Dosage: 20 MG, UNK
     Route: 042
     Dates: start: 20111201
  3. LASIX [Concomitant]
     Dosage: 40 MG, UNK
     Route: 042
     Dates: start: 20111201
  4. ZOFRAN [Concomitant]
     Dosage: 8 MG, UNK
     Route: 042
     Dates: start: 20111201
  5. CISPLATIN [Concomitant]
     Dosage: 75 MG/M2, UNK
     Route: 042

REACTIONS (11)
  - CONSTIPATION [None]
  - ABDOMINAL PAIN [None]
  - NAUSEA [None]
  - DIARRHOEA [None]
  - NEUTROPENIA [None]
  - DECREASED APPETITE [None]
  - HAEMATEMESIS [None]
  - MUSCULAR WEAKNESS [None]
  - PARAESTHESIA [None]
  - ABDOMINAL PAIN UPPER [None]
  - ASTHENIA [None]
